FAERS Safety Report 16482631 (Version 1)
Quarter: 2019Q2

REPORT INFORMATION
  Report Type: Spontaneous
  Country: US (occurrence: US)
  Receive Date: 20190627
  Receipt Date: 20190627
  Transmission Date: 20190711
  Serious: Yes (Other)
  Sender: FDA-Public Use
  Company Number: PHEH2019US026275

PATIENT
  Age: 7 Year
  Sex: Male

DRUGS (2)
  1. KYMRIAH [Suspect]
     Active Substance: TISAGENLECLEUCEL
     Indication: ACUTE LYMPHOCYTIC LEUKAEMIA RECURRENT
     Dosage: UNK
     Route: 065
     Dates: start: 201806
  2. KYMRIAH [Suspect]
     Active Substance: TISAGENLECLEUCEL
     Indication: BONE MARROW DISORDER

REACTIONS (5)
  - Tracheobronchial dyskinesia [Unknown]
  - Malignant neoplasm progression [Unknown]
  - Lung infection [Unknown]
  - Bronchiectasis [Unknown]
  - Acute lymphocytic leukaemia recurrent [Unknown]

NARRATIVE: CASE EVENT DATE: 20190614
